FAERS Safety Report 11118282 (Version 1)
Quarter: 2015Q2

REPORT INFORMATION
  Report Type: Report from Study
  Country: FR (occurrence: FR)
  Receive Date: 20150518
  Receipt Date: 20150518
  Transmission Date: 20150821
  Serious: Yes (Life-Threatening, Other)
  Sender: FDA-Public Use
  Company Number: FR-009507513-1505FRA004743

PATIENT
  Age: 39 Year
  Sex: Female
  Weight: 98 kg

DRUGS (11)
  1. LEKOVIT CA [Concomitant]
     Active Substance: CALCIUM CARBONATE\CHOLECALCIFEROL
     Indication: BONE LESION
     Dosage: 500 MG, BID
     Dates: start: 20130807
  2. TEMOZOLOMIDE. [Suspect]
     Active Substance: TEMOZOLOMIDE
     Dosage: DAYS 1 THROUGH 5 OF 28-DAY CYCLE (150 MG/M2, 1 IN 1 D), CYCLICAL
     Route: 048
     Dates: start: 20130515, end: 20130908
  3. ABT-888 [Suspect]
     Active Substance: VELIPARIB
     Indication: BREAST CANCER
     Dosage: DAYS 1 THROUGH 7 OF 28-DAY CYCLE (40 MG,2 IN 1 D)
     Route: 048
     Dates: start: 20130417, end: 20130910
  4. INNOHEP [Concomitant]
     Active Substance: TINZAPARIN SODIUM
     Indication: PULMONARY EMBOLISM
     Dosage: 0.9 ML, QD
     Dates: start: 20130806
  5. TEMOZOLOMIDE. [Suspect]
     Active Substance: TEMOZOLOMIDE
     Indication: BREAST CANCER
     Dosage: DAYS 1 THROUGH 5 OF 28-DAY CYCLE (150 MG/M2, 1 IN 1 D), CYCLICAL
     Route: 048
     Dates: start: 20130417, end: 20130421
  6. MOVICOL [Concomitant]
     Active Substance: POLYETHYLENE GLYCOL 3350\POTASSIUM CHLORIDE\SODIUM BICARBONATE\SODIUM CHLORIDE
     Indication: CONSTIPATION
     Dosage: 2 DF, BID
     Dates: start: 20130910
  7. TOPALGIC (TRAMADOL HYDROCHLORIDE) [Concomitant]
     Active Substance: TRAMADOL
     Indication: CHEST PAIN
     Dosage: 50 MG, PRN
     Dates: start: 20130910
  8. XGEVA [Concomitant]
     Active Substance: DENOSUMAB
     Indication: BONE LESION
     Dosage: 120 MG, QM
     Dates: start: 20130807
  9. PRIMPERAN [Concomitant]
     Active Substance: METOCLOPRAMIDE HYDROCHLORIDE
     Indication: VOMITING
  10. TOPALGIC LP [Concomitant]
     Active Substance: TRAMADOL
     Indication: CHEST PAIN
     Dosage: 100 MG, BID
     Dates: start: 20130910
  11. PRIMPERAN [Concomitant]
     Active Substance: METOCLOPRAMIDE HYDROCHLORIDE
     Indication: NAUSEA
     Dosage: 10 MG, PRN
     Dates: start: 20130910

REACTIONS (2)
  - Malignant neoplasm progression [Unknown]
  - Acute myeloid leukaemia [Unknown]

NARRATIVE: CASE EVENT DATE: 201504
